FAERS Safety Report 6790644-4 (Version None)
Quarter: 2010Q2

REPORT INFORMATION
  Report Type: 
  Country: None (occurrence: None)
  Receive Date: 20100520
  Receipt Date: 20090916
  Transmission Date: 20101027
  Serious: Yes (Other)
  Sender: FDA-Public Use
  Company Number: 2009191653

PATIENT
  Age: 58 Year
  Sex: Female
  Weight: 72.5 kg

DRUGS (11)
  1. PROVERA [Suspect]
     Indication: HORMONE REPLACEMENT THERAPY
     Dosage: ORAL
     Route: 048
     Dates: start: 19980101
  2. PROVERA [Suspect]
     Indication: MENOPAUSAL SYMPTOMS
     Dosage: ORAL
     Route: 048
     Dates: start: 19980101
  3. PREMARIN [Suspect]
     Indication: HORMONE REPLACEMENT THERAPY
     Dates: start: 19970101, end: 19980101
  4. PREMARIN [Suspect]
     Indication: MENOPAUSAL SYMPTOMS
     Dates: start: 19970101, end: 19980101
  5. PREMPRO [Suspect]
     Indication: HORMONE REPLACEMENT THERAPY
     Dates: start: 19980101, end: 20000101
  6. PREMPRO [Suspect]
     Indication: MENOPAUSAL SYMPTOMS
     Dates: start: 19980101, end: 20000101
  7. ESTRATEST [Suspect]
     Indication: HORMONE REPLACEMENT THERAPY
     Dates: start: 19970101, end: 20010101
  8. ESTRATEST [Suspect]
     Indication: MENOPAUSAL SYMPTOMS
     Dates: start: 19970101, end: 20010101
  9. COMBIPATCH [Suspect]
     Indication: HORMONE REPLACEMENT THERAPY
     Dates: start: 19990101
  10. COMBIPATCH [Suspect]
     Indication: MENOPAUSAL SYMPTOMS
     Dates: start: 19990101
  11. ASPIRIN [Concomitant]

REACTIONS (1)
  - BREAST CANCER FEMALE [None]
